FAERS Safety Report 8050568-1 (Version None)
Quarter: 2012Q1

REPORT INFORMATION
  Report Type: 
  Country: None (occurrence: None)
  Receive Date: 20120117
  Receipt Date: 20120111
  Transmission Date: 20120608
  Serious: Yes (Death, Life-Threatening)
  Sender: FDA-Public Use
  Company Number: US-COVIDIEN/TYCO HEALTHCARE/MALLINCKRODT-T201200433

PATIENT
  Age: 67 Year
  Sex: Female

DRUGS (1)
  1. OPTIRAY 160 [Suspect]
     Indication: COMPUTERISED TOMOGRAM
     Dosage: 150 ML, SINGLE
     Route: 042

REACTIONS (2)
  - DEATH [None]
  - PULSELESS ELECTRICAL ACTIVITY [None]
